FAERS Safety Report 4698177-6 (Version None)
Quarter: 2005Q2

REPORT INFORMATION
  Report Type: 
  Country: None (occurrence: None)
  Receive Date: 20050623
  Receipt Date: 20050616
  Transmission Date: 20051028
  Serious: Yes (Other)
  Sender: FDA-Public Use
  Company Number: GB-GLAXOSMITHKLINE-B0384919A

PATIENT
  Age: 62 Year
  Sex: Male

DRUGS (4)
  1. CEFUROXIME SODIUM [Suspect]
     Dosage: 750MG UNKNOWN
     Route: 042
     Dates: start: 20050322
  2. METRONIDAZOLE [Suspect]
     Dosage: 500MG UNKNOWN
     Route: 042
     Dates: start: 20050322
  3. ASPIRIN [Concomitant]
     Indication: MYOCARDIAL INFARCTION
     Dosage: 75MG PER DAY
     Route: 048
  4. SIMVASTATIN [Concomitant]
     Indication: MYOCARDIAL INFARCTION
     Dosage: 40MG PER DAY
     Route: 048

REACTIONS (2)
  - HYPOTENSION [None]
  - URTICARIA [None]
